FAERS Safety Report 4927982-3 (Version None)
Quarter: 2006Q1

REPORT INFORMATION
  Report Type: 
  Country: None (occurrence: None)
  Receive Date: 20060223
  Receipt Date: 20060207
  Transmission Date: 20060701
  Serious: Yes (Other)
  Sender: FDA-Public Use
  Company Number: T05-ESP-02694-01

PATIENT
  Age: 82 Year
  Sex: Female
  Weight: 59 kg

DRUGS (3)
  1. MEMANTINE HCL [Suspect]
     Indication: DEMENTIA ALZHEIMER'S TYPE
     Dosage: 20 MG QD PO
     Route: 048
     Dates: start: 20031104, end: 20031203
  2. NON-STREOID ANTI-INFLAMMATORY/ANALGESIC [Concomitant]
  3. ANXIOLYTICS [Concomitant]

REACTIONS (1)
  - EPILEPSY [None]
